FAERS Safety Report 20593961 (Version 1)
Quarter: 2022Q1

REPORT INFORMATION
  Report Type: Spontaneous
  Country: NZ (occurrence: NZ)
  Receive Date: 20220315
  Receipt Date: 20220315
  Transmission Date: 20220424
  Serious: Yes (Other)
  Sender: FDA-Public Use
  Company Number: NZ-AMGEN-NZLSP2022042912

PATIENT
  Age: 20 Year
  Sex: Male

DRUGS (9)
  1. PEGFILGRASTIM [Suspect]
     Active Substance: PEGFILGRASTIM
     Indication: Prophylaxis
     Dosage: UNK
     Route: 065
  2. METHOTREXATE [Suspect]
     Active Substance: METHOTREXATE
     Indication: Central nervous system lymphoma
     Dosage: 4 GRAM PER SQUARE METRE (DAY 1)
     Route: 042
  3. CYCLOPHOSPHAMIDE [Concomitant]
     Active Substance: CYCLOPHOSPHAMIDE
     Indication: Central nervous system lymphoma
     Dosage: 750 MILLIGRAM/SQ. METER
     Route: 042
  4. DOXORUBICIN [Concomitant]
     Active Substance: DOXORUBICIN
     Indication: Central nervous system lymphoma
     Dosage: 50 MILLIGRAM/SQ. METER
     Route: 042
  5. VINCRISTINE [Concomitant]
     Active Substance: VINCRISTINE
     Indication: Central nervous system lymphoma
     Dosage: 1.4 MILLIGRAM/SQ. METER (CAPPED AT 2 MG)
     Route: 042
  6. ETOPOSIDE [Concomitant]
     Active Substance: ETOPOSIDE
     Indication: Central nervous system lymphoma
     Dosage: 100 MILLIGRAM/SQ. METER (ON DAYS 1-3 (DAYS 2-3 GIVEN ORALLY))
     Route: 048
  7. PREDNISONE [Concomitant]
     Active Substance: PREDNISONE
     Indication: Central nervous system lymphoma
     Dosage: QD (DAYS 1-5)
  8. IFOSFAMIDE [Concomitant]
     Active Substance: IFOSFAMIDE
     Indication: Central nervous system lymphoma
     Dosage: 2 GRAM PER SQUARE METRE (DAYS 3-5)
     Route: 042
  9. DEXAMETHASONE [Concomitant]
     Active Substance: DEXAMETHASONE
     Dosage: 4 MILLIGAM, BID (ON DAYS 6-10)
     Route: 048

REACTIONS (2)
  - Central nervous system lymphoma [Recovering/Resolving]
  - Acute kidney injury [Unknown]
